FAERS Safety Report 6466497-0 (Version None)
Quarter: 2009Q4

REPORT INFORMATION
  Report Type: 
  Country: None (occurrence: None)
  Receive Date: 20091201
  Receipt Date: 20091201
  Transmission Date: 20100525
  Serious: Yes (Other)
  Sender: FDA-Public Use
  Company Number: None

PATIENT
  Age: 50 Year
  Sex: Female
  Weight: 61.2356 kg

DRUGS (1)
  1. CLONIDINE [Suspect]
     Indication: HOT FLUSH
     Dosage: 0.1 MG PER DAY TRANSDERMAL
     Route: 062
     Dates: start: 20091021, end: 20091030

REACTIONS (14)
  - AGEUSIA [None]
  - BRONCHIAL DISORDER [None]
  - CHEST DISCOMFORT [None]
  - CHOKING [None]
  - DRY EYE [None]
  - DRY MOUTH [None]
  - DRY THROAT [None]
  - DYSPNOEA [None]
  - FATIGUE [None]
  - INFLUENZA [None]
  - MUCOSAL DRYNESS [None]
  - NASAL DRYNESS [None]
  - VISUAL ACUITY REDUCED [None]
  - WHEEZING [None]
